FAERS Safety Report 7680685-7 (Version None)
Quarter: 2011Q3

REPORT INFORMATION
  Report Type: 
  Country: None (occurrence: None)
  Receive Date: 20110812
  Receipt Date: 20110809
  Transmission Date: 20111222
  Serious: Yes (Other)
  Sender: FDA-Public Use
  Company Number: CO-PFIZER INC-2011174618

PATIENT
  Age: 51 Year
  Sex: Female
  Weight: 70 kg

DRUGS (10)
  1. KETAMINE [Concomitant]
     Dosage: UNK
  2. MAGNESIUM SULFATE [Concomitant]
     Dosage: UNK
  3. OMEPRAZOLE [Concomitant]
     Dosage: UNK
  4. METFORMIN [Concomitant]
     Dosage: UNK
  5. TRAMADOL [Concomitant]
     Dosage: UNK
  6. VARENICLINE TARTRATE [Suspect]
     Indication: SMOKING CESSATION THERAPY
     Dosage: 1 MG EVERY 12 HOURS
     Route: 048
     Dates: start: 20110601, end: 20110601
  7. LIDOCAINE [Concomitant]
     Dosage: UNK
  8. ZOLPIDEM [Concomitant]
     Dosage: UNK
  9. AMITRIPTYLINE [Concomitant]
     Indication: DEPRESSION
     Dosage: 50 MG, 1X/DAY
  10. FLUOXETINE [Concomitant]
     Indication: DEPRESSION
     Dosage: 40 MG, 1X/DAY

REACTIONS (3)
  - DEPRESSION [None]
  - SUICIDAL IDEATION [None]
  - IRRITABILITY [None]
